FAERS Safety Report 6679707-1 (Version None)
Quarter: 2010Q2

REPORT INFORMATION
  Report Type: 
  Country: None (occurrence: None)
  Receive Date: 20100413
  Receipt Date: 20100309
  Transmission Date: 20101027
  Serious: Yes (Other)
  Sender: FDA-Public Use
  Company Number: US-BAXTER-2009BH011040

PATIENT
  Age: 56 Year
  Sex: Female
  Weight: 71 kg

DRUGS (13)
  1. HEPARIN SODIUM INJECTION [Suspect]
     Indication: CATHETERISATION CARDIAC
     Route: 065
     Dates: start: 20080309, end: 20080309
  2. HEPARIN SODIUM INJECTION [Suspect]
     Indication: CORONARY ARTERY BYPASS
     Route: 065
     Dates: start: 20080309, end: 20080309
  3. HEPARIN SODIUM INJECTION [Suspect]
     Route: 042
     Dates: start: 20080310, end: 20080310
  4. HEPARIN SODIUM INJECTION [Suspect]
     Route: 042
     Dates: start: 20080310, end: 20080310
  5. HEPARIN SODIUM INJECTION [Suspect]
     Route: 065
     Dates: start: 20080311, end: 20080311
  6. HEPARIN SODIUM INJECTION [Suspect]
     Route: 065
     Dates: start: 20080311, end: 20080311
  7. HEPARIN SODIUM INJECTION [Suspect]
     Route: 058
     Dates: start: 20080312, end: 20080313
  8. HEPARIN SODIUM INJECTION [Suspect]
     Route: 058
     Dates: start: 20080312, end: 20080313
  9. METFORMIN HCL [Concomitant]
     Indication: DRUG USE FOR UNKNOWN INDICATION
     Route: 065
  10. ISOSORBIDE [Concomitant]
     Indication: DRUG USE FOR UNKNOWN INDICATION
     Route: 065
  11. DARVOCET-N 100 [Concomitant]
     Indication: DRUG USE FOR UNKNOWN INDICATION
     Route: 065
  12. ALBUTEROL SULFATE AUTOHALER [Concomitant]
     Indication: ASTHMA
     Route: 055
  13. HYDROCODONE BITARTRATE [Concomitant]
     Indication: BACK PAIN
     Route: 048

REACTIONS (5)
  - COAGULOPATHY [None]
  - HAEMOTHORAX [None]
  - HEPARIN-INDUCED THROMBOCYTOPENIA [None]
  - HYPERSENSITIVITY [None]
  - PLEURAL EFFUSION [None]
